FAERS Safety Report 12006388 (Version 1)
Quarter: 2016Q1

REPORT INFORMATION
  Report Type: Spontaneous
  Country: GB (occurrence: GB)
  Receive Date: 20160205
  Receipt Date: 20160205
  Transmission Date: 20160526
  Serious: Yes (Other)
  Sender: FDA-Public Use
  Company Number: PHHY2016GB012060

PATIENT
  Age: 40 Year
  Sex: Female
  Weight: 92.98 kg

DRUGS (1)
  1. CLARITHROMYCIN SANDOZ [Suspect]
     Active Substance: CLARITHROMYCIN
     Indication: MASTITIS
     Dosage: 500 MG, UNK
     Route: 048
     Dates: start: 20160113

REACTIONS (6)
  - Oropharyngeal pain [Recovered/Resolved]
  - Insomnia [Recovering/Resolving]
  - Vulvovaginal candidiasis [Not Recovered/Not Resolved]
  - Dermatitis allergic [Not Recovered/Not Resolved]
  - Mouth ulceration [Recovering/Resolving]
  - Dysgeusia [Not Recovered/Not Resolved]

NARRATIVE: CASE EVENT DATE: 20160113
